FAERS Safety Report 5751638-0 (Version None)
Quarter: 2008Q2

REPORT INFORMATION
  Report Type: 
  Country: None (occurrence: None)
  Receive Date: 20080528
  Receipt Date: 20080521
  Transmission Date: 20081010
  Serious: Yes (Other)
  Sender: FDA-Public Use
  Company Number: PHHY2008JP08586

PATIENT
  Age: 81 Year
  Sex: Female
  Weight: 52 kg

DRUGS (8)
  1. NITRODERM [Suspect]
     Dosage: UNK
     Route: 062
     Dates: start: 20030701
  2. TIAPRIDE HYDROCHLORIDE [Suspect]
     Dosage: 25MG/DAY
     Route: 048
     Dates: start: 20040430, end: 20040601
  3. CALCIUM CARBONATE [Concomitant]
     Dosage: UNK
     Dates: start: 20030701
  4. OMEPRAZOLE [Concomitant]
     Dosage: UNK
     Dates: start: 20030701
  5. IRSOGLADINE MALEATE [Concomitant]
     Dosage: UNK
     Dates: start: 20030701
  6. AMEZINIUM METILSULFATE [Concomitant]
     Dosage: UNK
     Dates: start: 20030701
  7. ERYTHROMYCIN [Concomitant]
  8. CARBOCISTEINE [Concomitant]
     Dosage: UNK
     Dates: start: 20030701

REACTIONS (2)
  - DYSPHAGIA [None]
  - PNEUMONIA ASPIRATION [None]
